FAERS Safety Report 8683261 (Version 2)
Quarter: 2013Q4

REPORT INFORMATION
  Report Type: Spontaneous
  Country: US (occurrence: US)
  Receive Date: 20120726
  Receipt Date: 20131031
  Transmission Date: 20140711
  Serious: No
  Sender: FDA-Public Use
  Company Number: US-009507513-2012SP033320

PATIENT
  Age: 22 Year
  Sex: Female
  Weight: 79.38 kg

DRUGS (2)
  1. IMPLANON [Suspect]
     Indication: CONTRACEPTION
     Dosage: EVERY 3 YEARS
     Route: 059
     Dates: start: 20120213
  2. BENADRYL [Concomitant]
     Dosage: 1 DF, UNK

REACTIONS (1)
  - Chest discomfort [Unknown]
